FAERS Safety Report 13370151 (Version 1)
Quarter: 2017Q1

REPORT INFORMATION
  Report Type: Spontaneous
  Country: SE (occurrence: SE)
  Receive Date: 20170324
  Receipt Date: 20170324
  Transmission Date: 20170429
  Serious: Yes (Hospitalization)
  Sender: FDA-Public Use
  Company Number: SE-PURDUE-GBR-2017-0044260

PATIENT
  Age: 88 Year
  Sex: Male

DRUGS (26)
  1. MOVICOL [Concomitant]
     Active Substance: POLYETHYLENE GLYCOL 3350\POTASSIUM CHLORIDE\SODIUM BICARBONATE\SODIUM CHLORIDE
  2. CITALOPRAM [Concomitant]
     Active Substance: CITALOPRAM HYDROBROMIDE
  3. NITROLINGUAL [Concomitant]
     Active Substance: NITROGLYCERIN
     Dosage: UNK, PRN
  4. VENTOLIN [Concomitant]
     Active Substance: ALBUTEROL SULFATE
     Dosage: UNK, PRN
  5. BEHEPAN [Concomitant]
     Active Substance: HYDROXOCOBALAMIN
  6. FURIX [Concomitant]
     Active Substance: FUROSEMIDE
  7. ALVEDON [Concomitant]
     Active Substance: ACETAMINOPHEN
  8. SERETIDE [Concomitant]
     Active Substance: FLUTICASONE PROPIONATE\SALMETEROL XINAFOATE
  9. CILAXORAL [Concomitant]
     Active Substance: SODIUM PICOSULFATE
     Dosage: UNK, PRN
  10. METOLAZONE. [Concomitant]
     Active Substance: METOLAZONE
     Dosage: UNK, PRN
  11. INDERAL [Concomitant]
     Active Substance: PROPRANOLOL HYDROCHLORIDE
     Dosage: UNK, PRN
  12. OXYCONTIN [Suspect]
     Active Substance: OXYCODONE HYDROCHLORIDE
     Indication: PAIN
     Dosage: 10 MG, BID
     Route: 048
  13. ESOMEPRAZOLE MAGNESIUM. [Concomitant]
     Active Substance: ESOMEPRAZOLE MAGNESIUM
  14. EPOETIN THETA [Concomitant]
     Active Substance: ERYTHROPOIETIN
  15. ZOPICLONE [Concomitant]
     Active Substance: ZOPICLONE
     Dosage: UNK, PRN
  16. SPIRONOLACTONE. [Concomitant]
     Active Substance: SPIRONOLACTONE
  17. MIRTAZAPINE. [Concomitant]
     Active Substance: MIRTAZAPINE
  18. AERIUS [Concomitant]
     Active Substance: DESLORATADINE
  19. VISCOTEARS [Concomitant]
     Active Substance: CARBOMER
     Dosage: UNK, PRN
  20. ETALPHA [Concomitant]
     Active Substance: ALFACALCIDOL
  21. WARFARIN [Concomitant]
     Active Substance: WARFARIN
  22. OXYNORM [Suspect]
     Active Substance: OXYCODONE HYDROCHLORIDE
     Indication: PAIN
     Dosage: 5 MG, PRN
     Route: 048
     Dates: start: 20160418
  23. KALCIPOS [Concomitant]
     Active Substance: CALCIUM CARBONATE
  24. GABAPENTIN. [Concomitant]
     Active Substance: GABAPENTIN
  25. COMBIVENT [Concomitant]
     Active Substance: ALBUTEROL SULFATE\IPRATROPIUM BROMIDE
  26. SOBRIL [Concomitant]
     Active Substance: OXAZEPAM
     Dosage: UNK, PRN

REACTIONS (2)
  - Toxicity to various agents [Recovered/Resolved]
  - Respiratory distress [Recovered/Resolved]

NARRATIVE: CASE EVENT DATE: 20170127
